FAERS Safety Report 10036130 (Version 2)
Quarter: 2014Q2

REPORT INFORMATION
  Report Type: Spontaneous
  Country: FR (occurrence: FR)
  Receive Date: 20140325
  Receipt Date: 20140418
  Transmission Date: 20141212
  Serious: Yes (Death, Life-Threatening, Hospitalization, Other)
  Sender: FDA-Public Use
  Company Number: FR-ABBVIE-14P-056-1216541-00

PATIENT
  Age: 83 Year
  Sex: Male

DRUGS (15)
  1. ZECLAR [Suspect]
     Indication: SKIN INFECTION
     Route: 048
     Dates: start: 20131113, end: 20140110
  2. TAVANIC [Suspect]
     Indication: SKIN INFECTION
     Route: 048
     Dates: start: 20131101, end: 20131226
  3. RIFADINE [Suspect]
     Indication: SKIN INFECTION
     Route: 048
     Dates: start: 20131101, end: 20131227
  4. MOPRAL [Suspect]
     Indication: PRODUCT USED FOR UNKNOWN INDICATION
     Route: 048
     Dates: end: 20140112
  5. COLCHIMAX [Suspect]
     Indication: PRODUCT USED FOR UNKNOWN INDICATION
     Route: 048
     Dates: start: 20131123, end: 20140112
  6. PREVISCAN [Suspect]
     Indication: CEREBROVASCULAR ACCIDENT PROPHYLAXIS
     Route: 048
     Dates: end: 20140114
  7. CALCIDOSE [Concomitant]
     Indication: PRODUCT USED FOR UNKNOWN INDICATION
     Route: 048
  8. MIMPARA [Concomitant]
     Indication: PRODUCT USED FOR UNKNOWN INDICATION
     Route: 048
  9. AMLOR [Concomitant]
     Indication: PRODUCT USED FOR UNKNOWN INDICATION
     Route: 048
  10. CORDARONE [Concomitant]
     Indication: ATRIAL FIBRILLATION
     Route: 048
  11. RISORDAN [Concomitant]
     Indication: PRODUCT USED FOR UNKNOWN INDICATION
     Route: 048
  12. LASILIX [Concomitant]
     Indication: PRODUCT USED FOR UNKNOWN INDICATION
     Route: 048
  13. TAHOR [Concomitant]
     Indication: DYSLIPIDAEMIA
     Route: 048
  14. PLAVIX [Concomitant]
     Indication: CEREBROVASCULAR ACCIDENT PROPHYLAXIS
     Route: 048
  15. SYMBICORT [Concomitant]
     Indication: PRODUCT USED FOR UNKNOWN INDICATION
     Route: 055

REACTIONS (2)
  - Pancytopenia [Fatal]
  - Cardio-respiratory arrest [Fatal]
